FAERS Safety Report 9688437 (Version 1)
Quarter: 2013Q4

REPORT INFORMATION
  Report Type: Spontaneous
  Country: US (occurrence: US)
  Receive Date: 20131114
  Receipt Date: 20131114
  Transmission Date: 20140711
  Serious: No
  Sender: FDA-Public Use
  Company Number: US-BAYER-2013-137800

PATIENT
  Age: 60 Year
  Sex: Female

DRUGS (1)
  1. ADEMPAS [Suspect]
     Indication: PULMONARY ARTERIAL HYPERTENSION
     Dosage: 1 MG, TID
     Route: 048
     Dates: start: 20131030

REACTIONS (3)
  - Flushing [None]
  - Dyspepsia [None]
  - Joint swelling [None]
